FAERS Safety Report 14287860 (Version 2)
Quarter: 2018Q1

REPORT INFORMATION
  Report Type: Spontaneous
  Country: US (occurrence: US)
  Receive Date: 20171214
  Receipt Date: 20180112
  Transmission Date: 20180509
  Serious: Yes (Death, Hospitalization, Other)
  Sender: FDA-Public Use
  Company Number: US-VYERA PHARMACEUTICALS, LLC-2017VYE00058

PATIENT
  Age: 56 Year
  Sex: Male

DRUGS (5)
  1. CEFDINIR. [Concomitant]
     Active Substance: CEFDINIR
  2. PREDNISONE. [Concomitant]
     Active Substance: PREDNISONE
  3. DARAPRIM [Suspect]
     Active Substance: PYRIMETHAMINE
     Indication: HIV INFECTION
     Dosage: 50 MG, 1X/WEEK
     Route: 048
     Dates: start: 20160113
  4. MORPHINE [Concomitant]
     Active Substance: MORPHINE
  5. DOXYCYCLINE. [Concomitant]
     Active Substance: DOXYCYCLINE

REACTIONS (6)
  - Lung infection [Unknown]
  - Peripheral swelling [Unknown]
  - Death [Fatal]
  - Abdominal distension [Unknown]
  - Skin disorder [Unknown]
  - Off label use [Recovered/Resolved]

NARRATIVE: CASE EVENT DATE: 20160113
